FAERS Safety Report 25599410 (Version 1)
Quarter: 2025Q3

REPORT INFORMATION
  Report Type: Report from Study
  Country: US (occurrence: US)
  Receive Date: 20250724
  Receipt Date: 20250724
  Transmission Date: 20251020
  Serious: Yes (Other)
  Sender: ALEXION PHARMACEUTICALS
  Company Number: US-AstraZeneca-CH-00913729A

PATIENT
  Sex: Male

DRUGS (1)
  1. ULTOMIRIS [Suspect]
     Active Substance: RAVULIZUMAB-CWVZ
     Indication: Paroxysmal nocturnal haemoglobinuria

REACTIONS (10)
  - Hernia [Unknown]
  - Cardiac disorder [Unknown]
  - Post procedural haemorrhage [Unknown]
  - Haemoglobin decreased [Unknown]
  - Sinusitis [Unknown]
  - Insomnia [Not Recovered/Not Resolved]
  - Therapeutic response shortened [Unknown]
  - Platelet count decreased [Unknown]
  - Coagulopathy [Unknown]
  - Arthropathy [Unknown]
